FAERS Safety Report 6209619-9 (Version None)
Quarter: 2009Q2

REPORT INFORMATION
  Report Type: 
  Country: None (occurrence: None)
  Receive Date: 20090601
  Receipt Date: 20070416
  Transmission Date: 20091009
  Serious: Yes (Other)
  Sender: FDA-Public Use
  Company Number: US-ASTRAZENECA-2006UW03006

PATIENT
  Age: 30 Year
  Sex: Female
  Weight: 80.7 kg

DRUGS (17)
  1. SEROQUEL [Suspect]
     Indication: ANXIETY
     Dosage: 25MG - 50 MG
     Route: 048
     Dates: start: 20031001, end: 20040923
  2. SEROQUEL [Suspect]
     Indication: DEPRESSION
     Dosage: 25MG - 50 MG
     Route: 048
     Dates: start: 20031001, end: 20040923
  3. SEROQUEL [Suspect]
     Indication: BIPOLAR DISORDER
     Dosage: 25MG - 50 MG
     Route: 048
     Dates: start: 20031001, end: 20040923
  4. SEROQUEL [Suspect]
     Dosage: 25-100 MG
     Route: 048
     Dates: start: 20031029
  5. SEROQUEL [Suspect]
     Dosage: 25-100 MG
     Route: 048
     Dates: start: 20031029
  6. SEROQUEL [Suspect]
     Dosage: 25-100 MG
     Route: 048
     Dates: start: 20031029
  7. TRAZODONE HCL [Concomitant]
     Dates: start: 20040101
  8. TRAZODONE HCL [Concomitant]
     Dosage: 100-150 MG
     Dates: start: 20030417
  9. LORTAB [Concomitant]
     Indication: PAIN
     Dates: start: 20020805
  10. SOMA [Concomitant]
     Indication: PAIN
     Dates: start: 20020805
  11. COMBIVENT [Concomitant]
     Dosage: 2 PUFFS THREE TIMES A DAY
     Dates: start: 20030318
  12. GEMFIBROZIL [Concomitant]
     Indication: BLOOD TRIGLYCERIDES
     Dates: start: 20040923
  13. GLUCOPHAGE [Concomitant]
     Dosage: 500-1000 MG
     Dates: start: 20040623
  14. GLYSET [Concomitant]
     Dates: start: 20040116
  15. XANAX [Concomitant]
     Dosage: 1 MG TWO TIMES A DAY, 1 MG THREE TIMES A DAY
     Dates: start: 20020805
  16. FLEXERIL [Concomitant]
     Dates: start: 20030515
  17. PROZAC [Concomitant]
     Dosage: 20-40 MG
     Dates: start: 20030417

REACTIONS (6)
  - BLOOD CHOLESTEROL INCREASED [None]
  - BLOOD GLUCOSE ABNORMAL [None]
  - DIABETES MELLITUS [None]
  - HYPERLIPIDAEMIA [None]
  - METABOLIC SYNDROME [None]
  - WEIGHT INCREASED [None]
